FAERS Safety Report 25577944 (Version 3)
Quarter: 2025Q3

REPORT INFORMATION
  Report Type: Spontaneous
  Country: US (occurrence: US)
  Receive Date: 20250718
  Receipt Date: 20250819
  Transmission Date: 20251021
  Serious: No
  Sender: PFIZER
  Company Number: US-PFIZER INC-202500097609

PATIENT
  Age: 48 Year
  Sex: Female
  Weight: 104.33 kg

DRUGS (2)
  1. NICOTROL [Suspect]
     Active Substance: NICOTINE
     Indication: Smoking cessation therapy
     Route: 045
  2. NICOTROL [Suspect]
     Active Substance: NICOTINE

REACTIONS (5)
  - Incorrect dose administered by device [Unknown]
  - Drug ineffective [Unknown]
  - Device delivery system issue [Unknown]
  - Accidental exposure to product [Unknown]
  - Exposure via skin contact [Unknown]
